FAERS Safety Report 6481708-3 (Version None)
Quarter: 2009Q4

REPORT INFORMATION
  Report Type: 
  Country: None (occurrence: None)
  Receive Date: 20091208
  Receipt Date: 20090321
  Transmission Date: 20100525
  Serious: No
  Sender: FDA-Public Use
  Company Number: US-AMGEN-KDL339666

PATIENT
  Sex: Female

DRUGS (2)
  1. ENBREL [Suspect]
     Indication: PSORIATIC ARTHROPATHY
     Route: 058
     Dates: start: 20090222
  2. ENBREL [Suspect]
     Indication: PSORIASIS

REACTIONS (5)
  - BURNING SENSATION [None]
  - HOT FLUSH [None]
  - INSOMNIA [None]
  - PSORIASIS [None]
  - URTICARIA [None]
